FAERS Safety Report 9553803 (Version 1)
Quarter: 2013Q2

REPORT INFORMATION
  Report Type: Spontaneous
  Country: US (occurrence: None)
  Receive Date: 20130507
  Receipt Date: 20130507
  Transmission Date: 20140414
  Serious: Yes (Hospitalization)
  Sender: FDA-Public Use
  Company Number: PHEH2012US020328

PATIENT
  Sex: Female

DRUGS (5)
  1. TASIGNA [Suspect]
  2. AMBIEN (ZOLPIDEM TARTRATE) [Concomitant]
  3. CALCIUM D (CALCIUM, COLECALCIFEROL) [Concomitant]
  4. MULTIVITAMINS (ASCORBIC ACID, ERGOCALCIFEROL, FOLIC ACID, NICOTINAMIDE, PANTHENOL, RETINOL, RIBOFLAVIN, THIAMINE HYDROCHLORIDE) [Concomitant]
  5. PRAVASTATIN (PRAVASTATIN) [Concomitant]

REACTIONS (3)
  - Pancreatitis acute [None]
  - Bronchitis [None]
  - Abdominal pain [None]
